FAERS Safety Report 8900998 (Version 1)
Quarter: 2012Q4

REPORT INFORMATION
  Report Type: 
  Country: US (occurrence: US)
  Receive Date: 20121109
  Receipt Date: 20121109
  Transmission Date: 20130627
  Serious: Yes (Hospitalization)
  Sender: FDA-Public Use
  Company Number: US-US-EMD SERONO, INC.-7165713

PATIENT
  Sex: Male

DRUGS (1)
  1. REBIF [Suspect]
     Indication: MULTIPLE SCLEROSIS
     Route: 058
     Dates: start: 201207

REACTIONS (4)
  - Musculoskeletal discomfort [Unknown]
  - Limb discomfort [Unknown]
  - Depression [Not Recovered/Not Resolved]
  - Injection site reaction [Not Recovered/Not Resolved]
